FAERS Safety Report 23663329 (Version 1)
Quarter: 2024Q1

REPORT INFORMATION
  Report Type: Spontaneous
  Country: US (occurrence: US)
  Receive Date: 20240322
  Receipt Date: 20240322
  Transmission Date: 20240409
  Serious: Yes (Other)
  Sender: FDA-Public Use
  Company Number: HIKM2401304

PATIENT
  Sex: Female

DRUGS (1)
  1. FLUTICASONE PROPIONATE AND SALMETEROL [Suspect]
     Active Substance: FLUTICASONE PROPIONATE\SALMETEROL XINAFOATE
     Indication: Product used for unknown indication
     Dosage: IN THE MORNING AND IN THE EVENING
     Route: 045

REACTIONS (11)
  - COVID-19 [Unknown]
  - Hypoacusis [Unknown]
  - Poor quality product administered [Unknown]
  - Decreased appetite [Unknown]
  - Dysgeusia [Unknown]
  - Insomnia [Unknown]
  - Rhinorrhoea [Unknown]
  - Cough [Unknown]
  - Malaise [Unknown]
  - Pain [None]
  - Memory impairment [Unknown]
